FAERS Safety Report 7325703-0 (Version None)
Quarter: 2011Q1

REPORT INFORMATION
  Report Type: 
  Country: None (occurrence: None)
  Receive Date: 20110302
  Receipt Date: 20110202
  Transmission Date: 20110831
  Serious: No
  Sender: FDA-Public Use
  Company Number: US-B.I. PHARMACEUTICALS,INC./RIDGEFIELD-2011-BP-03282BP

PATIENT
  Age: 75 Year
  Sex: Male

DRUGS (4)
  1. OXYGEN [Concomitant]
     Indication: CHRONIC OBSTRUCTIVE PULMONARY DISEASE
  2. PROVENTIL [Concomitant]
     Indication: CHRONIC OBSTRUCTIVE PULMONARY DISEASE
  3. COMBIVENT [Suspect]
     Dosage: 10 PUF
     Route: 055
     Dates: start: 20100201
  4. COMBIVENT [Suspect]
     Indication: CHRONIC OBSTRUCTIVE PULMONARY DISEASE
     Dosage: 4 PUF
     Route: 055
     Dates: start: 20010101, end: 20100201

REACTIONS (11)
  - DYSPHONIA [None]
  - RHINORRHOEA [None]
  - NASAL DRYNESS [None]
  - ERUCTATION [None]
  - ANXIETY [None]
  - DYSPHAGIA [None]
  - URINARY RETENTION [None]
  - GASTROOESOPHAGEAL REFLUX DISEASE [None]
  - NASAL CONGESTION [None]
  - DYSPEPSIA [None]
  - DIVERTICULUM OESOPHAGEAL [None]
